FAERS Safety Report 5588379-9 (Version None)
Quarter: 2008Q1

REPORT INFORMATION
  Report Type: 
  Country: None (occurrence: None)
  Receive Date: 20080111
  Receipt Date: 20071207
  Transmission Date: 20080703
  Serious: No
  Sender: FDA-Public Use
  Company Number: A0689553A

PATIENT
  Age: 60 Year
  Sex: Female
  Weight: 97.3 kg

DRUGS (2)
  1. TYKERB [Suspect]
     Indication: BREAST CANCER
     Dosage: 250MG FIVE TIMES PER DAY
     Route: 048
     Dates: start: 20070622
  2. NO CONCURRENT MEDICATION [Concomitant]

REACTIONS (3)
  - DIARRHOEA [None]
  - PRURITUS [None]
  - RASH [None]
